FAERS Safety Report 9580568 (Version 1)
Quarter: 2013Q3

REPORT INFORMATION
  Report Type: Spontaneous
  Country: US (occurrence: None)
  Receive Date: 20130916
  Receipt Date: 20130916
  Transmission Date: 20140515
  Serious: No
  Sender: FDA-Public Use
  Company Number: JPI-P-022905

PATIENT
  Age: 55 Year
  Sex: Female
  Weight: 81.65 kg

DRUGS (2)
  1. XYREM [Suspect]
     Indication: NARCOLEPSY
     Dosage: 4.5 GM 2 IN 1 DAY
     Route: 048
     Dates: start: 20080418
  2. MODAFINIL [Concomitant]

REACTIONS (2)
  - Blood pressure increased [None]
  - Stress [None]
